FAERS Safety Report 8616661-7 (Version None)
Quarter: 2012Q3

REPORT INFORMATION
  Report Type: 
  Country: None (occurrence: None)
  Receive Date: 20120823
  Receipt Date: 20120817
  Transmission Date: 20120928
  Serious: Yes (Hospitalization)
  Sender: FDA-Public Use
  Company Number: GB-009507513-1208GBR008606

PATIENT

DRUGS (3)
  1. ACETAMINOPHEN AND CODEINE PHOSPHATE [Concomitant]
  2. ADCAL-D3 [Concomitant]
  3. FOSAMAX [Suspect]
     Indication: OSTEOPOROSIS
     Dosage: 70 MG, QW
     Route: 048
     Dates: end: 20120714

REACTIONS (3)
  - HAEMATEMESIS [None]
  - DUODENAL ULCER PERFORATION [None]
  - RECTAL HAEMORRHAGE [None]
